FAERS Safety Report 23925735 (Version 1)
Quarter: 2024Q2

REPORT INFORMATION
  Report Type: Spontaneous
  Country: NL (occurrence: NL)
  Receive Date: 20240531
  Receipt Date: 20240531
  Transmission Date: 20240716
  Serious: Yes (Hospitalization)
  Sender: FDA-Public Use
  Company Number: None

PATIENT
  Age: 57 Year
  Sex: Female
  Weight: 105 kg

DRUGS (1)
  1. CISPLATIN [Suspect]
     Active Substance: CISPLATIN
     Indication: Oropharyngeal cancer
     Dosage: 1 X EVERY 3 WEEKS  INFOPL CONC / BRAND NAME NOT SPECIFIED
     Route: 065
     Dates: start: 20240408, end: 20240411

REACTIONS (1)
  - Acute kidney injury [Recovering/Resolving]
